FAERS Safety Report 16603172 (Version 1)
Quarter: 2019Q3

REPORT INFORMATION
  Report Type: Spontaneous
  Country: US (occurrence: US)
  Receive Date: 20190721
  Receipt Date: 20190721
  Transmission Date: 20191004
  Serious: No
  Sender: FDA-Public Use
  Company Number: US-APOTEX-2019AP017464

PATIENT
  Sex: Male

DRUGS (2)
  1. FENTANYL. [Suspect]
     Active Substance: FENTANYL
     Dosage: 1 DF, Q.O.D (ONE EVERY 48 HOURS)(INITIAL BATCH)
     Route: 062
  2. FENTANYL. [Suspect]
     Active Substance: FENTANYL
     Indication: PRODUCT USED FOR UNKNOWN INDICATION
     Dosage: 1 DF, Q.O.D. (ONE EVERY 48 HOURS)
     Route: 062

REACTIONS (3)
  - Application site irritation [Unknown]
  - Product adhesion issue [Unknown]
  - Product quality issue [Unknown]
